FAERS Safety Report 4647098-3 (Version None)
Quarter: 2005Q2

REPORT INFORMATION
  Report Type: 
  Country: None (occurrence: None)
  Receive Date: 20050331
  Receipt Date: 20050126
  Transmission Date: 20051028
  Serious: No
  Sender: FDA-Public Use
  Company Number: 05P-163-0288486-00

PATIENT
  Age: 66 Year
  Sex: Female
  Weight: 83.0083 kg

DRUGS (10)
  1. HUMIRA [Suspect]
     Indication: RHEUMATOID ARTHRITIS
     Dosage: 40 MG, 1 IN 2 WK, SUBCUTANEOUS
     Route: 058
     Dates: start: 20040801
  2. ESTROGENS CONJUGATED [Concomitant]
  3. METHOTREXATE [Concomitant]
  4. AMLODIPINE BESYLATE [Concomitant]
  5. LEVOTHYROXINE SODIUM [Concomitant]
  6. FOLIC ACID [Concomitant]
  7. ATENOLOL [Concomitant]
  8. DIGOXIN [Concomitant]
  9. SERTRALINE HYDROCHLORIDE [Concomitant]
  10. PREDNISONE [Concomitant]

REACTIONS (1)
  - PSORIASIS [None]
